FAERS Safety Report 16141603 (Version 1)
Quarter: 2019Q2

REPORT INFORMATION
  Report Type: Spontaneous
  Country: GB (occurrence: GB)
  Receive Date: 20190401
  Receipt Date: 20190401
  Transmission Date: 20190711
  Serious: Yes (Hospitalization, Other)
  Sender: FDA-Public Use
  Company Number: GB-IBIGEN-2019.06210

PATIENT
  Age: 86 Year
  Sex: Male

DRUGS (7)
  1. PARACETAMOL [Interacting]
     Active Substance: ACETAMINOPHEN
     Indication: SEPSIS
     Route: 048
  2. ADRENALINE [Concomitant]
     Active Substance: EPINEPHRINE
     Indication: VASOPRESSIVE THERAPY
  3. SODIUM BICARBONATE 8% [Concomitant]
     Route: 011
  4. FLUCLOXACILLIN [Suspect]
     Active Substance: FLUCLOXACILLIN
     Indication: STAPHYLOCOCCAL BACTERAEMIA
     Route: 042
  5. VASOPRESSIN. [Concomitant]
     Active Substance: VASOPRESSIN
     Indication: VASOPRESSIVE THERAPY
  6. MEROPENEM. [Concomitant]
     Active Substance: MEROPENEM
     Indication: SEPSIS
  7. NORADRENALINE [Concomitant]
     Active Substance: NOREPINEPHRINE
     Indication: VASOPRESSIVE THERAPY

REACTIONS (10)
  - Drug interaction [Recovering/Resolving]
  - Metabolic acidosis [Recovering/Resolving]
  - Hyperglycaemia [Unknown]
  - Crepitations [Unknown]
  - Wheezing [Unknown]
  - Condition aggravated [Recovering/Resolving]
  - Respiratory rate increased [Unknown]
  - Septic shock [Unknown]
  - Respiratory failure [Recovering/Resolving]
  - Hypotension [Unknown]
